FAERS Safety Report 11714471 (Version 1)
Quarter: 2015Q4

REPORT INFORMATION
  Report Type: Spontaneous
  Country: CA (occurrence: CA)
  Receive Date: 20151109
  Receipt Date: 20151109
  Transmission Date: 20160304
  Serious: Yes (Other)
  Sender: FDA-Public Use
  Company Number: CA-PURDUE PHARMA-CAN-2015-0006213

PATIENT
  Age: 9 Year
  Sex: Male

DRUGS (1)
  1. BIPHENTIN CAPSULE [Suspect]
     Active Substance: METHYLPHENIDATE
     Indication: ATTENTION DEFICIT/HYPERACTIVITY DISORDER
     Dosage: UNK
     Route: 065

REACTIONS (2)
  - Suicidal ideation [Recovered/Resolved]
  - Paranoia [Recovered/Resolved]
